FAERS Safety Report 24048225 (Version 1)
Quarter: 2024Q3

REPORT INFORMATION
  Report Type: Report from Study
  Country: US (occurrence: US)
  Receive Date: 20240704
  Receipt Date: 20240704
  Transmission Date: 20241016
  Serious: Yes (Disabling, Other)
  Sender: ABBVIE
  Company Number: US-ABBVIE-5818991

PATIENT
  Sex: Male

DRUGS (1)
  1. SKYRIZI [Suspect]
     Active Substance: RISANKIZUMAB-RZAA
     Indication: Crohn^s disease
     Route: 058

REACTIONS (6)
  - Diabetic neuropathy [Unknown]
  - Renal transplant [Unknown]
  - Anaemia [Unknown]
  - Fistula [Unknown]
  - Gastrointestinal disorder [Unknown]
  - Dialysis [Unknown]
